FAERS Safety Report 17706085 (Version 1)
Quarter: 2020Q2

REPORT INFORMATION
  Report Type: Spontaneous
  Country: US (occurrence: US)
  Receive Date: 20200424
  Receipt Date: 20200424
  Transmission Date: 20200714
  Serious: No
  Sender: FDA-Public Use
  Company Number: US-CELGENEUS-USA-20200406936

PATIENT
  Sex: Male

DRUGS (3)
  1. REVLIMID [Suspect]
     Active Substance: LENALIDOMIDE
     Indication: PLASMA CELL MYELOMA
     Dosage: 10 MILLIGRAM
     Route: 048
     Dates: start: 20171129
  2. REVLIMID [Suspect]
     Active Substance: LENALIDOMIDE
     Dosage: INCREASED DOSE
     Route: 048
  3. REVLIMID [Suspect]
     Active Substance: LENALIDOMIDE
     Indication: HYDROCELE
     Dosage: 25 MILLIGRAM
     Route: 048
     Dates: start: 201608

REACTIONS (1)
  - Unevaluable event [Unknown]
